FAERS Safety Report 7738251-0 (Version None)
Quarter: 2011Q3

REPORT INFORMATION
  Report Type: 
  Country: None (occurrence: None)
  Receive Date: 20110908
  Receipt Date: 20110830
  Transmission Date: 20111222
  Serious: Yes (Death, Life-Threatening)
  Sender: FDA-Public Use
  Company Number: JP-CEPHALON-2011001806

PATIENT
  Age: 51 Year
  Sex: Female
  Weight: 58 kg

DRUGS (8)
  1. THEOPHYLLINE [Concomitant]
     Dates: end: 20110618
  2. RITUXIMAB [Concomitant]
     Dates: start: 20110111, end: 20110111
  3. AMBROXOL HYDROCHLORIDE [Concomitant]
     Dates: end: 20110618
  4. SULFAMETHOXAZOLE AND TRIMETHOPRIM [Concomitant]
     Dates: end: 20110618
  5. PREDNISOLONE [Concomitant]
     Dates: end: 20110524
  6. ACYCLOVIR [Concomitant]
     Dates: end: 20110228
  7. TREANDA [Suspect]
     Indication: NON-HODGKIN'S LYMPHOMA RECURRENT
     Route: 042
     Dates: start: 20110112, end: 20110113
  8. ERYTHROMYCIN ETHYLSUCCINATE [Concomitant]
     Dates: end: 20110618

REACTIONS (2)
  - LOBAR PNEUMONIA [None]
  - INTERSTITIAL LUNG DISEASE [None]
